FAERS Safety Report 21519350 (Version 1)
Quarter: 2022Q4

REPORT INFORMATION
  Report Type: Spontaneous
  Country: US (occurrence: None)
  Receive Date: 20221027
  Receipt Date: 20221027
  Transmission Date: 20230112
  Serious: Yes (Other)
  Sender: FDA-Public Use
  Company Number: None

PATIENT
  Age: 65 Year
  Sex: Male
  Weight: 86.18 kg

DRUGS (1)
  1. LOSARTAN POTASSIUM [Suspect]
     Active Substance: LOSARTAN POTASSIUM
     Indication: Blood pressure measurement
     Dosage: 1 PILL  EVERY DAY    DAILY BY MOUTH?
     Route: 048
     Dates: end: 202207

REACTIONS (4)
  - Product colour issue [None]
  - Product size issue [None]
  - Hypotension [None]
  - Product substitution issue [None]

NARRATIVE: CASE EVENT DATE: 20220909
